FAERS Safety Report 6816247-0 (Version None)
Quarter: 2010Q3

REPORT INFORMATION
  Report Type: 
  Country: None (occurrence: None)
  Receive Date: 20100702
  Receipt Date: 20100702
  Transmission Date: 20110219
  Serious: Yes (Hospitalization, Other)
  Sender: FDA-Public Use
  Company Number: None

PATIENT
  Age: 77 Year
  Sex: Male
  Weight: 65.7 kg

DRUGS (1)
  1. BENICAR [Suspect]
     Indication: HYPERTENSION
     Dosage: 20MGS DAILY PO
     Route: 048
     Dates: start: 20070101, end: 20090710

REACTIONS (11)
  - ANAEMIA [None]
  - COELIAC DISEASE [None]
  - DEHYDRATION [None]
  - DIARRHOEA [None]
  - ELECTROLYTE DEPLETION [None]
  - ENTERITIS [None]
  - GENERAL PHYSICAL HEALTH DETERIORATION [None]
  - MALNUTRITION [None]
  - NO THERAPEUTIC RESPONSE [None]
  - RENAL TUBULAR NECROSIS [None]
  - WEIGHT DECREASED [None]
